FAERS Safety Report 12248807 (Version 2)
Quarter: 2016Q3

REPORT INFORMATION
  Report Type: Spontaneous
  Country: TR (occurrence: TR)
  Receive Date: 20160408
  Receipt Date: 20160809
  Transmission Date: 20161109
  Serious: Yes (Hospitalization)
  Sender: FDA-Public Use
  Company Number: TR-PFIZER INC-2016196743

PATIENT
  Age: 68 Year
  Sex: Female

DRUGS (5)
  1. METHYLPREDNISOLONE. [Concomitant]
     Active Substance: METHYLPREDNISOLONE
     Dosage: 4 MG, UNK
  2. ETODOLAC. [Concomitant]
     Active Substance: ETODOLAC
     Dosage: 600 MG, AS NEEDED
  3. XELJANZ [Suspect]
     Active Substance: TOFACITINIB CITRATE
     Dosage: 10 MG, DAILY
     Route: 048
     Dates: end: 20160217
  4. LANTUS [Concomitant]
     Active Substance: INSULIN GLARGINE
     Dosage: 22 UNIT
  5. ACTRAPID HM /00646001/ [Concomitant]
     Dosage: 3 TIMES 18 UNIT

REACTIONS (3)
  - Oedema peripheral [Recovering/Resolving]
  - Pneumonia [Recovering/Resolving]
  - Acute kidney injury [Recovering/Resolving]

NARRATIVE: CASE EVENT DATE: 20160215
